FAERS Safety Report 11821000 (Version 1)
Quarter: 2015Q4

REPORT INFORMATION
  Report Type: Spontaneous
  Country: US (occurrence: US)
  Receive Date: 20151210
  Receipt Date: 20151210
  Transmission Date: 20160305
  Serious: No
  Sender: FDA-Public Use
  Company Number: US-JNJFOC-20150800377

PATIENT
  Sex: Female
  Weight: 40 kg

DRUGS (2)
  1. IMBRUVICA [Suspect]
     Active Substance: IBRUTINIB
     Indication: CHRONIC LYMPHOCYTIC LEUKAEMIA
     Route: 048
     Dates: start: 20150622
  2. OXYCODONE [Concomitant]
     Active Substance: OXYCODONE
     Indication: PAIN

REACTIONS (7)
  - Nausea [Not Recovered/Not Resolved]
  - Abdominal distension [Unknown]
  - Dysgeusia [Not Recovered/Not Resolved]
  - Joint swelling [Recovering/Resolving]
  - Weight increased [Not Recovered/Not Resolved]
  - Anal injury [Unknown]
  - Faeces soft [Not Recovered/Not Resolved]

NARRATIVE: CASE EVENT DATE: 2015
